FAERS Safety Report 19809829 (Version 1)
Quarter: 2021Q3

REPORT INFORMATION
  Report Type: Spontaneous
  Country: US (occurrence: US)
  Receive Date: 20210904
  Receipt Date: 20210904
  Transmission Date: 20211014
  Serious: Yes (Hospitalization)
  Sender: FDA-Public Use
  Company Number: None

PATIENT
  Age: 40 Year
  Sex: Male
  Weight: 65 kg

DRUGS (4)
  1. IFOSFAMIDE. [Suspect]
     Active Substance: IFOSFAMIDE
     Dates: end: 20210816
  2. NEULASTA [Suspect]
     Active Substance: PEGFILGRASTIM
     Dates: end: 20210817
  3. CISPLATIN. [Suspect]
     Active Substance: CISPLATIN
     Dates: end: 20210816
  4. TAXOL [Suspect]
     Active Substance: PACLITAXEL
     Dates: end: 20210812

REACTIONS (1)
  - Staphylococcus test positive [None]

NARRATIVE: CASE EVENT DATE: 20210830
